FAERS Safety Report 7103762-8 (Version None)
Quarter: 2010Q4

REPORT INFORMATION
  Report Type: 
  Country: None (occurrence: None)
  Receive Date: 20101115
  Receipt Date: 20101101
  Transmission Date: 20110411
  Serious: Yes (Hospitalization, Other)
  Sender: FDA-Public Use
  Company Number: US-ROCHE-718957

PATIENT
  Sex: Male
  Weight: 88.5 kg

DRUGS (7)
  1. ACCUTANE [Suspect]
     Indication: ACNE
     Route: 048
     Dates: start: 19991022
  2. ACCUTANE [Suspect]
     Route: 048
     Dates: start: 20011121, end: 20020828
  3. NIZORAL [Concomitant]
  4. VECTRIN [Concomitant]
     Dates: start: 20000101
  5. DORYX [Concomitant]
     Dates: start: 20000101
  6. TAZORAC [Concomitant]
     Dates: start: 20010101
  7. PREDNISONE [Concomitant]

REACTIONS (7)
  - ALOPECIA [None]
  - COLITIS [None]
  - CROHN'S DISEASE [None]
  - GASTROINTESTINAL INJURY [None]
  - INFLAMMATORY BOWEL DISEASE [None]
  - PROCTITIS [None]
  - SMALL INTESTINAL OBSTRUCTION [None]
